FAERS Safety Report 17325699 (Version 1)
Quarter: 2020Q1

REPORT INFORMATION
  Report Type: Spontaneous
  Country: US (occurrence: US)
  Receive Date: 20200127
  Receipt Date: 20200127
  Transmission Date: 20200409
  Serious: Yes (Hospitalization)
  Sender: FDA-Public Use
  Company Number: US-ASTRAZENECA-2020SE12861

PATIENT
  Sex: Male
  Weight: 5.9 kg

DRUGS (5)
  1. POLY-VIU-FLOR/IRON [Concomitant]
  2. SYNAGIS [Suspect]
     Active Substance: PALIVIZUMAB
     Indication: PREMATURE BABY
     Route: 030
  3. SYNAGIS [Suspect]
     Active Substance: PALIVIZUMAB
     Indication: PREMATURE BABY
     Route: 030
     Dates: start: 20191230
  4. SYNAGIS [Suspect]
     Active Substance: PALIVIZUMAB
     Indication: PREMATURE BABY
     Route: 030
     Dates: start: 20200106
  5. TAMIFLU [Concomitant]
     Active Substance: OSELTAMIVIR PHOSPHATE

REACTIONS (1)
  - Influenza [Unknown]
